FAERS Safety Report 6970324-2 (Version None)
Quarter: 2010Q3

REPORT INFORMATION
  Report Type: 
  Country: None (occurrence: None)
  Receive Date: 20100908
  Receipt Date: 20100907
  Transmission Date: 20110219
  Serious: Yes (Life-Threatening)
  Sender: FDA-Public Use
  Company Number: IT-SANOFI-AVENTIS-2010SA052803

PATIENT
  Age: 46 Year
  Sex: Female

DRUGS (1)
  1. FERLIXIT [Suspect]
     Route: 042
     Dates: start: 20100818, end: 20100818

REACTIONS (5)
  - ANAPHYLACTIC SHOCK [None]
  - DYSPNOEA [None]
  - HYPOTENSION [None]
  - HYPOXIA [None]
  - URTICARIA [None]
